FAERS Safety Report 17300197 (Version 1)
Quarter: 2020Q1

REPORT INFORMATION
  Report Type: Spontaneous
  Country: US (occurrence: US)
  Receive Date: 20200103
  Receipt Date: 20200103
  Transmission Date: 20200409
  Serious: Yes (Hospitalization)
  Sender: FDA-Public Use
  Company Number: None

PATIENT
  Sex: Female

DRUGS (4)
  1. TEMOZOLOMIDE, 20 UGM [Suspect]
     Active Substance: TEMOZOLOMIDE
     Indication: BRAIN NEOPLASM MALIGNANT
     Dosage: ?          OTHER FREQUENCY:DURING RADIATION;?
     Route: 048
     Dates: start: 20191227
  2. IBUPROFEN. [Concomitant]
     Active Substance: IBUPROFEN
  3. KEPPRA [Concomitant]
     Active Substance: LEVETIRACETAM
  4. TEMOZOLOMIDE, 100 MG [Suspect]
     Active Substance: TEMOZOLOMIDE
     Indication: BRAIN NEOPLASM MALIGNANT
     Dosage: ?          OTHER FREQUENCY:DURING RADIATION ;?
     Route: 048
     Dates: start: 20191227

REACTIONS (1)
  - Hospitalisation [None]
